FAERS Safety Report 7141516-7 (Version None)
Quarter: 2010Q4

REPORT INFORMATION
  Report Type: 
  Country: None (occurrence: None)
  Receive Date: 20101126
  Receipt Date: 20101117
  Transmission Date: 20110411
  Serious: Yes (Congenital Anomaly)
  Sender: FDA-Public Use
  Company Number: AT-GDP-10409245

PATIENT

DRUGS (1)
  1. DIFFERIN [Suspect]
     Indication: FOLLICULAR MUCINOSIS
     Dosage: (1 DF QOD TRANSPLACENTAL)
     Route: 064
     Dates: start: 20091107, end: 20100211

REACTIONS (3)
  - ABORTION INDUCED [None]
  - DANDY-WALKER SYNDROME [None]
  - MATERNAL DRUGS AFFECTING FOETUS [None]
